FAERS Safety Report 9768005 (Version 1)
Quarter: 2013Q4

REPORT INFORMATION
  Report Type: Spontaneous
  Country: US (occurrence: None)
  Receive Date: 20131217
  Receipt Date: 20131217
  Transmission Date: 20140711
  Serious: Yes (Life-Threatening)
  Sender: FDA-Public Use
  Company Number: 2012BAX016122

PATIENT
  Age: 8 Year
  Sex: Female
  Weight: 60 kg

DRUGS (1)
  1. GAMMAGARD LIQUID (IMMUNOGLOBULIN, NORMAL HUMAN) (SOLUTION FOR INFUSION) [Suspect]
     Indication: IMMUNODEFICIENCY COMMON VARIABLE
     Dosage: 0.7143 GM (20 GM, 1 IN 4 WK) , INTRAVENOUS?

REACTIONS (2)
  - Anaphylactic reaction [None]
  - Abdominal discomfort [None]
